FAERS Safety Report 13668964 (Version 3)
Quarter: 2017Q3

REPORT INFORMATION
  Report Type: Spontaneous
  Country: CY (occurrence: CY)
  Receive Date: 20170620
  Receipt Date: 20170810
  Transmission Date: 20171127
  Serious: Yes (Hospitalization, Other)
  Sender: FDA-Public Use
  Company Number: CY-PFIZER INC-2017260162

PATIENT
  Age: 38 Year
  Sex: Male

DRUGS (5)
  1. MEDROL [Suspect]
     Active Substance: METHYLPREDNISOLONE
     Dosage: 12 MG, DAILY
  2. NASACORT [Concomitant]
     Active Substance: TRIAMCINOLONE ACETONIDE
     Indication: DYSPNOEA
     Dosage: 2 SPRAYS EVERY MORNING, DAILY
     Route: 045
     Dates: start: 201703, end: 20170325
  3. MEDROL [Suspect]
     Active Substance: METHYLPREDNISOLONE
     Dosage: 8 MG, DAILY
  4. XYZAL [Concomitant]
     Active Substance: LEVOCETIRIZINE DIHYDROCHLORIDE
     Indication: DYSPNOEA
     Dosage: 5 MG, 1X/DAY (EVENING)
     Dates: start: 201703, end: 20170325
  5. MEDROL [Suspect]
     Active Substance: METHYLPREDNISOLONE
     Indication: DYSPNOEA
     Dosage: 16MG 1 TABLET EVERY TWO DAYS (RECEIVED 6 TABLETS IN 12 DAYS)
     Dates: start: 201703, end: 20170325

REACTIONS (11)
  - Central nervous system lymphoma [Unknown]
  - Nasal polyps [Unknown]
  - Anal polyp [Unknown]
  - Dizziness [Unknown]
  - Impaired driving ability [Unknown]
  - Balance disorder [Unknown]
  - Gait disturbance [Unknown]
  - Road traffic accident [Unknown]
  - Mydriasis [Unknown]
  - Memory impairment [Unknown]
  - Spinal disorder [Unknown]

NARRATIVE: CASE EVENT DATE: 201703
